FAERS Safety Report 9920103 (Version 3)
Quarter: 2014Q2

REPORT INFORMATION
  Report Type: Spontaneous
  Country: JP (occurrence: JP)
  Receive Date: 20140224
  Receipt Date: 20140417
  Transmission Date: 20141212
  Serious: Yes (Hospitalization, Other)
  Sender: FDA-Public Use
  Company Number: JP-PFIZER INC-2014048725

PATIENT
  Age: 40 Year
  Sex: Female

DRUGS (2)
  1. SOLU-MEDROL [Suspect]
     Dosage: 16 MG DAILY
     Route: 042
     Dates: start: 201010
  2. PROGRAF [Suspect]
     Dosage: UNK

REACTIONS (1)
  - Progressive multifocal leukoencephalopathy [Recovered/Resolved]
